FAERS Safety Report 11267795 (Version 1)
Quarter: 2015Q3

REPORT INFORMATION
  Report Type: Spontaneous
  Country: GB (occurrence: GB)
  Receive Date: 20150713
  Receipt Date: 20150713
  Transmission Date: 20151125
  Serious: Yes (Other)
  Sender: FDA-Public Use
  Company Number: GB-TEVA-577147USA

PATIENT
  Age: 40 Year
  Sex: Female
  Weight: 118 kg

DRUGS (1)
  1. LEVONELLE [Suspect]
     Active Substance: LEVONORGESTREL
     Indication: POST COITAL CONTRACEPTION
     Route: 048
     Dates: start: 20150622, end: 20150622

REACTIONS (1)
  - Cystitis [Unknown]
